FAERS Safety Report 4976528-2 (Version None)
Quarter: 2006Q2

REPORT INFORMATION
  Report Type: 
  Country: None (occurrence: None)
  Receive Date: 20060418
  Receipt Date: 20060418
  Transmission Date: 20061013
  Serious: Yes (Hospitalization, Other)
  Sender: FDA-Public Use
  Company Number: None

PATIENT
  Sex: Male
  Weight: 10.3 kg

DRUGS (7)
  1. CYCLOPHOSPHAMIDE [Suspect]
     Indication: B PRECURSOR TYPE ACUTE LEUKAEMIA
     Dosage: 470 MG
     Dates: start: 20060327, end: 20060327
  2. CYTARABINE [Suspect]
     Dosage: 318 MG
     Dates: start: 20060213, end: 20060406
  3. DEXAMETHASONE [Suspect]
     Dosage: 84 MG
     Dates: start: 20060213, end: 20060312
  4. MERCAPTOPURINE [Suspect]
     Dosage: 403 MG
     Dates: start: 20060327, end: 20060409
  5. METHOTREXATE [Suspect]
     Dosage: 40 MG
     Dates: start: 20060220, end: 20060410
  6. PEG L-ASPARAGNASE (K-H) [Suspect]
     Dosage: 2350 MG
     Dates: start: 20060213, end: 20060410
  7. VINCRISTINE SULFATE [Suspect]
     Dosage: 2.8 MG
     Dates: start: 20060213, end: 20060410

REACTIONS (29)
  - ABDOMINAL ABSCESS [None]
  - ABDOMINAL DISTENSION [None]
  - ABDOMINAL TENDERNESS [None]
  - ANORECTAL DISORDER [None]
  - BLOOD PRESSURE INCREASED [None]
  - BOWEL SOUNDS ABNORMAL [None]
  - BRADYCARDIA [None]
  - CAECITIS [None]
  - ENTEROBACTER INFECTION [None]
  - FAECES DISCOLOURED [None]
  - FISTULA [None]
  - HAEMATOCHEZIA [None]
  - HAEMATOCRIT DECREASED [None]
  - HEART RATE IRREGULAR [None]
  - INTESTINAL FISTULA [None]
  - INTESTINAL PERFORATION [None]
  - LETHARGY [None]
  - LOSS OF CONSCIOUSNESS [None]
  - MUCOSAL EXFOLIATION [None]
  - NEUTROPHIL COUNT DECREASED [None]
  - PALLOR [None]
  - PSEUDOMONAS INFECTION [None]
  - PYREXIA [None]
  - RESPIRATORY SYNCYTIAL VIRUS INFECTION [None]
  - SERRATIA INFECTION [None]
  - SKIN DISCOLOURATION [None]
  - TACHYCARDIA [None]
  - VOLUME BLOOD DECREASED [None]
  - VOMITING [None]
